FAERS Safety Report 16588638 (Version 3)
Quarter: 2019Q3

REPORT INFORMATION
  Report Type: Report from Study
  Country: US (occurrence: US)
  Receive Date: 20190718
  Receipt Date: 20190813
  Transmission Date: 20191004
  Serious: Yes (Hospitalization)
  Sender: FDA-Public Use
  Company Number: US-PFIZER INC-2019207088

PATIENT
  Age: 73 Year
  Sex: Female

DRUGS (1)
  1. IBRANCE [Suspect]
     Active Substance: PALBOCICLIB
     Indication: BREAST CANCER
     Dosage: 100 MG, CYCLIC (DAILY FOR 21 DAYS OF 28 DAY CYCLE)
     Route: 048
     Dates: start: 20190508, end: 20190709

REACTIONS (16)
  - Urinary tract infection [Recovered/Resolved]
  - Decreased appetite [Unknown]
  - Gait disturbance [Unknown]
  - Nausea [Recovering/Resolving]
  - Pain in extremity [Unknown]
  - Pharyngeal ulceration [Unknown]
  - Neoplasm progression [Unknown]
  - Vomiting [Recovered/Resolved]
  - Peripheral swelling [Unknown]
  - Pyrexia [Unknown]
  - Arthralgia [Unknown]
  - Hyponatraemia [Recovering/Resolving]
  - Stomatitis [Unknown]
  - Dysphagia [Unknown]
  - Sensation of foreign body [Unknown]
  - Diarrhoea [Recovered/Resolved]

NARRATIVE: CASE EVENT DATE: 2019
